FAERS Safety Report 4599207-2 (Version None)
Quarter: 2005Q1

REPORT INFORMATION
  Report Type: 
  Country: None (occurrence: None)
  Receive Date: 20050127
  Receipt Date: 20041026
  Transmission Date: 20050727
  Serious: No
  Sender: FDA-Public Use
  Company Number: USA041082313

PATIENT
  Age: 5 Year
  Sex: Male

DRUGS (1)
  1. STRATTERA [Suspect]
     Dosage: 25  MG DAY
     Dates: start: 20041016

REACTIONS (3)
  - CRYING [None]
  - PAIN [None]
  - TEARFULNESS [None]
